FAERS Safety Report 7945082-5 (Version None)
Quarter: 2011Q4

REPORT INFORMATION
  Report Type: 
  Country: None (occurrence: None)
  Receive Date: 20111129
  Receipt Date: 20111116
  Transmission Date: 20120403
  Serious: Yes (Other)
  Sender: FDA-Public Use
  Company Number: KR-US-EMD SERONO, INC.-7074534

PATIENT
  Sex: Female

DRUGS (2)
  1. LUVERIS [Suspect]
     Indication: OVARIAN HYPERSTIMULATION SYNDROME
     Route: 058
     Dates: start: 20110307, end: 20110308
  2. GONAL-F [Suspect]
     Indication: IN VITRO FERTILISATION
     Route: 058
     Dates: start: 20110228, end: 20110308

REACTIONS (1)
  - ABORTION MISSED [None]
